FAERS Safety Report 7316206-8 (Version None)
Quarter: 2011Q1

REPORT INFORMATION
  Report Type: 
  Country: None (occurrence: None)
  Receive Date: 20110225
  Receipt Date: 20110215
  Transmission Date: 20110831
  Serious: Yes (Other)
  Sender: FDA-Public Use
  Company Number: US-ROCHE-734527

PATIENT
  Sex: Male
  Weight: 154.2 kg

DRUGS (6)
  1. ACCUTANE [Suspect]
     Dosage: FREQUENY: QAM
     Route: 048
     Dates: start: 20061019, end: 20061119
  2. CRESTOR [Concomitant]
  3. ACCUTANE [Suspect]
     Indication: HIDRADENITIS
     Route: 048
     Dates: start: 20060701, end: 20060901
  4. ACCUTANE [Suspect]
     Route: 048
     Dates: start: 20060919, end: 20061019
  5. DIOVAN [Concomitant]
     Indication: HYPERTENSION
     Route: 048
  6. ALLOPURINOL [Concomitant]
     Indication: GOUT
     Route: 048

REACTIONS (12)
  - HIDRADENITIS [None]
  - DERMAL CYST [None]
  - CROHN'S DISEASE [None]
  - NAUSEA [None]
  - RECTAL HAEMORRHAGE [None]
  - INTESTINAL HAEMORRHAGE [None]
  - COLITIS ULCERATIVE [None]
  - OTITIS EXTERNA [None]
  - INFLAMMATORY BOWEL DISEASE [None]
  - ANXIETY [None]
  - ABDOMINAL PAIN [None]
  - OSTEOARTHRITIS [None]
